FAERS Safety Report 4336264-2 (Version None)
Quarter: 2004Q2

REPORT INFORMATION
  Report Type: 
  Country: None (occurrence: None)
  Receive Date: 20040407
  Receipt Date: 20040316
  Transmission Date: 20050107
  Serious: Yes (Hospitalization)
  Sender: FDA-Public Use
  Company Number: EWC040238095

PATIENT
  Age: 71 Year
  Sex: Female

DRUGS (18)
  1. PERMAX [Suspect]
     Indication: PARKINSON'S DISEASE
     Dosage: 0.5 MG/3 DAY
     Dates: start: 19990415, end: 20030110
  2. ORTHO-GYNEST (ESTRIOL) [Concomitant]
  3. PROLOPA [Concomitant]
  4. CLONAZEPAM [Concomitant]
  5. SULFASALAZINE [Concomitant]
  6. MESALAZINE [Concomitant]
  7. INTERAL (PROPRANOLOL HYDROCHLORIDE) [Concomitant]
  8. EMCONCOR (BISOPROLOL) [Concomitant]
  9. EMCORETIC [Concomitant]
  10. APROVEL (IRBESARTAN) [Concomitant]
  11. DIXARIT (CLONIDINE HYDROCHLORIDE) [Concomitant]
  12. CATAFLAM (DICLOFENAC SODIUM) [Concomitant]
  13. AUGEMENTIN [Concomitant]
  14. FRAXIPARIN (HEPARIN-FRACTION, CALCIUM SALT) [Concomitant]
  15. REPARIL (ESCIN) [Concomitant]
  16. MYOLASTAN (TETRAZEPAM) [Concomitant]
  17. VOLTAREN [Concomitant]
  18. STEARIC ACID [Concomitant]

REACTIONS (15)
  - COLITIS [None]
  - FATIGUE [None]
  - GASTRIC NEOPLASM [None]
  - HYDRONEPHROSIS [None]
  - LYMPHADENOPATHY [None]
  - MUSCLE CRAMP [None]
  - NAUSEA [None]
  - NEPHRITIS INTERSTITIAL [None]
  - OEDEMA PERIPHERAL [None]
  - RENAL DISORDER [None]
  - RENAL PAIN [None]
  - RETROPERITONEAL FIBROSIS [None]
  - SCIATICA [None]
  - SENSATION OF HEAVINESS [None]
  - TRIGEMINAL NEURALGIA [None]
